FAERS Safety Report 17879493 (Version 1)
Quarter: 2020Q2

REPORT INFORMATION
  Report Type: Spontaneous
  Country: US (occurrence: US)
  Receive Date: 20200609
  Receipt Date: 20200609
  Transmission Date: 20200714
  Serious: Yes (Hospitalization)
  Sender: FDA-Public Use
  Company Number: None

PATIENT
  Age: 62 Year
  Sex: Male
  Weight: 126.45 kg

DRUGS (22)
  1. AFINITOR [Suspect]
     Active Substance: EVEROLIMUS
     Indication: CARCINOID TUMOUR
     Route: 048
     Dates: start: 20181225
  2. LYRICA [Concomitant]
     Active Substance: PREGABALIN
  3. COENZYME Q10 [Concomitant]
     Active Substance: UBIDECARENONE
  4. ASPIRIN. [Concomitant]
     Active Substance: ASPIRIN
  5. NOVOLOG [Concomitant]
     Active Substance: INSULIN ASPART
  6. LOSARTAN. [Concomitant]
     Active Substance: LOSARTAN
  7. FUROSEMIDE. [Concomitant]
     Active Substance: FUROSEMIDE
  8. CARVEDILOL. [Concomitant]
     Active Substance: CARVEDILOL
  9. SILDENAFIL. [Concomitant]
     Active Substance: SILDENAFIL
  10. SANDOSTATIN [Concomitant]
     Active Substance: OCTREOTIDE ACETATE
  11. MULTIVITAMIN [Concomitant]
     Active Substance: VITAMINS
  12. LEVEMIR [Concomitant]
     Active Substance: INSULIN DETEMIR
  13. DICYCLOMINE [Concomitant]
     Active Substance: DICYCLOMINE HYDROCHLORIDE
  14. ANDROGEL, AMDLODIPINE, ALLOPURINOL [Concomitant]
  15. ONDANSETRON [Concomitant]
     Active Substance: ONDANSETRON
  16. FLONASE [Concomitant]
     Active Substance: FLUTICASONE PROPIONATE
  17. CLONIDINE. [Concomitant]
     Active Substance: CLONIDINE
  18. METFORMIN [Concomitant]
     Active Substance: METFORMIN HYDROCHLORIDE
  19. TAMSULOSIN [Concomitant]
     Active Substance: TAMSULOSIN
  20. VITAMIN D3 [Concomitant]
     Active Substance: CHOLECALCIFEROL
  21. LOMOTIL [Concomitant]
     Active Substance: ATROPINE SULFATE\DIPHENOXYLATE HYDROCHLORIDE
  22. ATORVASTATIN [Concomitant]
     Active Substance: ATORVASTATIN

REACTIONS (1)
  - Hospitalisation [None]

NARRATIVE: CASE EVENT DATE: 20200601
